FAERS Safety Report 6923369-2 (Version None)
Quarter: 2010Q3

REPORT INFORMATION
  Report Type: 
  Country: None (occurrence: None)
  Receive Date: 20100813
  Receipt Date: 20100806
  Transmission Date: 20110219
  Serious: Yes (Other)
  Sender: FDA-Public Use
  Company Number: US-MERCK-1008USA00770

PATIENT
  Sex: Female

DRUGS (1)
  1. FOSAMAX [Suspect]
     Route: 065
     Dates: start: 19980101, end: 20050101

REACTIONS (2)
  - IMPAIRED HEALING [None]
  - STRESS FRACTURE [None]
